FAERS Safety Report 5215008-6 (Version None)
Quarter: 2007Q1

REPORT INFORMATION
  Report Type: 
  Country: None (occurrence: None)
  Receive Date: 20070122
  Receipt Date: 20060911
  Transmission Date: 20070707
  Serious: Yes (Other)
  Sender: FDA-Public Use
  Company Number: US-PFIZER INC-2006053195

PATIENT
  Sex: Male
  Weight: 128.8 kg

DRUGS (2)
  1. BEXTRA [Suspect]
     Indication: BACK PAIN
     Route: 048
     Dates: start: 20040430, end: 20040614
  2. BEXTRA [Suspect]
     Indication: ARTHRALGIA

REACTIONS (1)
  - STEVENS-JOHNSON SYNDROME [None]
